FAERS Safety Report 25892122 (Version 2)
Quarter: 2025Q4

REPORT INFORMATION
  Report Type: Spontaneous
  Country: JP (occurrence: JP)
  Receive Date: 20251007
  Receipt Date: 20251103
  Transmission Date: 20260118
  Serious: Yes (Hospitalization, Other)
  Sender: PFIZER
  Company Number: JP-GENMAB-2025-02953

PATIENT
  Age: 30 Year
  Sex: Female

DRUGS (1)
  1. TIVDAK [Suspect]
     Active Substance: TISOTUMAB VEDOTIN-TFTV
     Indication: Cervix carcinoma recurrent
     Dosage: 2 MILLIGRAM/KILOGRAM
     Route: 042
     Dates: start: 20250910

REACTIONS (2)
  - Bladder tamponade [Recovering/Resolving]
  - Cystitis radiation [Recovering/Resolving]

NARRATIVE: CASE EVENT DATE: 20250911
